FAERS Safety Report 8166861-8 (Version None)
Quarter: 2012Q1

REPORT INFORMATION
  Report Type: 
  Country: None (occurrence: None)
  Receive Date: 20120227
  Receipt Date: 20120220
  Transmission Date: 20120608
  Serious: Yes (Other)
  Sender: FDA-Public Use
  Company Number: JP-ROCHE-1024082

PATIENT
  Sex: Male
  Weight: 57.7 kg

DRUGS (8)
  1. DIOVAN [Concomitant]
     Indication: HYPERTENSION
     Route: 048
     Dates: start: 20110920, end: 20111216
  2. TARCEVA [Suspect]
     Dosage: 11/12-12/1 [YASUKUSURI]
     Route: 048
     Dates: start: 20111011
  3. TARCEVA [Suspect]
     Indication: NON-SMALL CELL LUNG CANCER
     Dosage: 9/8-9/16 [YASUKUSURI]
     Route: 048
     Dates: start: 20110823
  4. TARCEVA [Suspect]
     Route: 048
     Dates: start: 20111202, end: 20111203
  5. TARCEVA [Suspect]
     Dosage: 9/30-10/10 [YASUKUSURI]
     Route: 048
     Dates: start: 20110917
  6. LOXOPROFEN [Concomitant]
     Indication: CHEST PAIN
     Dosage: FOR TON AT PAIN
     Route: 048
     Dates: start: 20111121
  7. AVASTIN [Suspect]
     Indication: NON-SMALL CELL LUNG CANCER
     Route: 042
     Dates: start: 20110823, end: 20111202
  8. ASTOMIN [Concomitant]
     Indication: NON-SMALL CELL LUNG CANCER
     Route: 048
     Dates: start: 20110920

REACTIONS (1)
  - INTERSTITIAL LUNG DISEASE [None]
